FAERS Safety Report 9300356 (Version 2)
Quarter: 2013Q2

REPORT INFORMATION
  Report Type: Spontaneous
  Country: US (occurrence: US)
  Receive Date: 20130521
  Receipt Date: 20130610
  Transmission Date: 20140414
  Serious: No
  Sender: FDA-Public Use
  Company Number: US-BAYER-2013-062729

PATIENT
  Sex: Female
  Weight: 74.83 kg

DRUGS (1)
  1. ALEVE CAPLET [Suspect]
     Dosage: 3 DF, BID
     Route: 048

REACTIONS (3)
  - Incorrect dose administered [None]
  - Drug ineffective [None]
  - Expired drug administered [None]
